FAERS Safety Report 8885211 (Version 2)
Quarter: 2014Q2

REPORT INFORMATION
  Report Type: Spontaneous
  Country: US (occurrence: US)
  Receive Date: 20121102
  Receipt Date: 20131024
  Transmission Date: 20141212
  Serious: No
  Sender: FDA-Public Use
  Company Number: US-PFIZER INC-2012266963

PATIENT
  Sex: Female
  Weight: 58.96 kg

DRUGS (3)
  1. TETRACYCLINE HCL [Suspect]
     Indication: INFECTION
     Dosage: UNK
  2. ACETYLSALICYLIC ACID [Concomitant]
     Indication: PAIN
     Dosage: 325 MG, AS NEEDED
  3. IBUPROFEN [Concomitant]
     Indication: PAIN
     Dosage: 600 MG, AS NEEDED

REACTIONS (1)
  - Hypersensitivity [Recovered/Resolved]
